FAERS Safety Report 17522027 (Version 3)
Quarter: 2020Q3

REPORT INFORMATION
  Report Type: Spontaneous
  Country: US (occurrence: US)
  Receive Date: 20200310
  Receipt Date: 20200910
  Transmission Date: 20201102
  Serious: No
  Sender: FDA-Public Use
  Company Number: US-FARMAPROD-201912-2117

PATIENT
  Age: 91 Year
  Sex: Female

DRUGS (5)
  1. OXERVATE [Suspect]
     Active Substance: CENEGERMIN-BKBJ
     Indication: NEUROTROPHIC KERATOPATHY
     Route: 047
     Dates: start: 20191106
  2. OXERVATE [Suspect]
     Active Substance: CENEGERMIN-BKBJ
     Indication: EXPOSURE KERATITIS
     Dates: start: 20200604
  3. TOBRAMYCIN AND DEXAMETHASONE [Concomitant]
     Active Substance: DEXAMETHASONE\TOBRAMYCIN
  4. VITAL TEARS [Concomitant]
  5. ERYTHROMYCIN. [Concomitant]
     Active Substance: ERYTHROMYCIN

REACTIONS (10)
  - Vision blurred [Unknown]
  - Visual impairment [Not Recovered/Not Resolved]
  - Dry eye [Unknown]
  - Ocular hyperaemia [Unknown]
  - Eye irritation [Unknown]
  - Epistaxis [Recovered/Resolved]
  - Lacrimation increased [Unknown]
  - Eye pain [Recovered/Resolved]
  - Ocular discomfort [Unknown]
  - Product dose omission issue [Unknown]

NARRATIVE: CASE EVENT DATE: 20200428
